FAERS Safety Report 4844516-2 (Version None)
Quarter: 2005Q4

REPORT INFORMATION
  Report Type: 
  Country: None (occurrence: None)
  Receive Date: 20051203
  Receipt Date: 20051121
  Transmission Date: 20060501
  Serious: Yes (Other)
  Sender: FDA-Public Use
  Company Number: PHBS2005US17175

PATIENT
  Age: 78 Year
  Sex: Male

DRUGS (2)
  1. CHLORAMPHENICOL [Suspect]
     Indication: BACILLUS INFECTION
     Dosage: 1 G, QID
     Route: 048
  2. HYDROCHLOROTHIAZIDE [Suspect]
     Indication: HYPERTENSION
     Dosage: 25 MG/DAY

REACTIONS (13)
  - ACID HEMOLYSIN TEST [None]
  - ANAEMIA [None]
  - BACILLUS INFECTION [None]
  - BENIGN PROSTATIC HYPERPLASIA [None]
  - BLOOD BILIRUBIN INCREASED [None]
  - BLOOD BILIRUBIN UNCONJUGATED INCREASED [None]
  - BLOOD LACTATE DEHYDROGENASE INCREASED [None]
  - CHROMATURIA [None]
  - HAEMATOCRIT DECREASED [None]
  - HAEMATURIA [None]
  - HIP ARTHROPLASTY [None]
  - PAROXYSMAL NOCTURNAL HAEMOGLOBINURIA [None]
  - URINARY TRACT INFECTION [None]
